FAERS Safety Report 11369157 (Version 1)
Quarter: 2015Q3

REPORT INFORMATION
  Report Type: Spontaneous
  Country: US (occurrence: None)
  Receive Date: 20150811
  Receipt Date: 20150811
  Transmission Date: 20151125
  Serious: Yes (Hospitalization)
  Sender: FDA-Public Use
  Company Number: None

PATIENT
  Age: 64 Year
  Sex: Male
  Weight: 80.3 kg

DRUGS (1)
  1. SULFAMETHOXAZOLE-TRIMETHOPRIM (SMZ) [Suspect]
     Active Substance: SULFAMETHOXAZOLE\TRIMETHOPRIM
     Indication: CELLULITIS
     Route: 048
     Dates: start: 20150528, end: 20150528

REACTIONS (8)
  - Swollen tongue [None]
  - Angioedema [None]
  - Rash [None]
  - Dysphagia [None]
  - Urticaria [None]
  - Tongue disorder [None]
  - Dyspnoea [None]
  - Drooling [None]

NARRATIVE: CASE EVENT DATE: 20150528
